FAERS Safety Report 8823481 (Version 1)
Quarter: 2012Q4

REPORT INFORMATION
  Report Type: 
  Country: US (occurrence: US)
  Receive Date: 20121003
  Receipt Date: 20121003
  Transmission Date: 20130627
  Serious: No
  Sender: FDA-Public Use
  Company Number: US-009507513-1209USA010885

PATIENT
  Sex: Male

DRUGS (3)
  1. DULERA [Suspect]
     Indication: ASTHMA
     Dosage: 200/5 mg 2 puff, bid
     Route: 055
  2. DULERA [Suspect]
     Dosage: 100/5 mcg 2 puff BID
     Route: 055
  3. SINGULAIR [Concomitant]

REACTIONS (2)
  - Mental disorder [Recovered/Resolved]
  - Feeling abnormal [Recovered/Resolved]
